FAERS Safety Report 8167690-1 (Version None)
Quarter: 2012Q1

REPORT INFORMATION
  Report Type: 
  Country: None (occurrence: None)
  Receive Date: 20120227
  Receipt Date: 20120214
  Transmission Date: 20120608
  Serious: Yes (Hospitalization)
  Sender: FDA-Public Use
  Company Number: DK-ELI_LILLY_AND_COMPANY-DK201112000331

PATIENT
  Sex: Female
  Weight: 86 kg

DRUGS (1)
  1. OLANZAPINE [Suspect]
     Indication: SCHIZOPHRENIA, PARANOID TYPE
     Dosage: 300 MG, EVERY TWO WEEKS
     Route: 030
     Dates: start: 20110915, end: 20111020

REACTIONS (3)
  - DIZZINESS [None]
  - SPEECH DISORDER [None]
  - GAIT DISTURBANCE [None]
